FAERS Safety Report 10094471 (Version 4)
Quarter: 2014Q2

REPORT INFORMATION
  Report Type: Spontaneous
  Country: NL (occurrence: NL)
  Receive Date: 20140422
  Receipt Date: 20140610
  Transmission Date: 20141212
  Serious: Yes (Life-Threatening, Hospitalization, Disabling, Other)
  Sender: FDA-Public Use
  Company Number: NL-BAYER-2014-054676

PATIENT
  Age: 35 Year
  Sex: Female

DRUGS (1)
  1. MIRENA [Suspect]
     Indication: CONTRACEPTION
     Dosage: DAILY DOSE 20 ?G
     Dates: start: 20130912

REACTIONS (9)
  - Cerebrovascular accident [Recovered/Resolved with Sequelae]
  - Endocarditis [Not Recovered/Not Resolved]
  - Lactobacillus infection [Not Recovered/Not Resolved]
  - Hemiparesis [Recovered/Resolved with Sequelae]
  - Cardiac murmur [Not Recovered/Not Resolved]
  - Endocarditis [Not Recovered/Not Resolved]
  - Musculoskeletal discomfort [None]
  - Weight decreased [None]
  - Anaemia [None]
